FAERS Safety Report 13073275 (Version 1)
Quarter: 2016Q4

REPORT INFORMATION
  Report Type: Spontaneous
  Country: US (occurrence: US)
  Receive Date: 20161229
  Receipt Date: 20161229
  Transmission Date: 20170207
  Serious: No
  Sender: FDA-Public Use
  Company Number: US-MYLANLABS-2016M1011779

PATIENT

DRUGS (2)
  1. VICODIN [Concomitant]
     Active Substance: ACETAMINOPHEN\HYDROCODONE BITARTRATE
     Indication: JOINT INJURY
     Dosage: UNK
     Route: 048
  2. THIORIDAZINE HYDROCHLORIDE TABLETS, USP [Suspect]
     Active Substance: THIORIDAZINE HYDROCHLORIDE
     Dosage: 25 MG, HS
     Route: 048

REACTIONS (2)
  - Dry mouth [Recovered/Resolved]
  - Feeling abnormal [Recovered/Resolved]
